FAERS Safety Report 14433945 (Version 1)
Quarter: 2018Q1

REPORT INFORMATION
  Report Type: Spontaneous
  Country: BR (occurrence: BR)
  Receive Date: 20180124
  Receipt Date: 20180124
  Transmission Date: 20180509
  Serious: Yes (Other)
  Sender: FDA-Public Use
  Company Number: PHHY2018BR009686

PATIENT
  Sex: Female
  Weight: 89.6 kg

DRUGS (1)
  1. FORASEQ [Suspect]
     Active Substance: BUDESONIDE\FORMOTEROL FUMARATE
     Indication: ASTHMA
     Dosage: UNK UNK, QD
     Route: 055

REACTIONS (4)
  - Nervousness [Recovering/Resolving]
  - Tremor [Recovering/Resolving]
  - Varicose vein [Recovering/Resolving]
  - Fatigue [Recovering/Resolving]
